FAERS Safety Report 6430196-1 (Version None)
Quarter: 2009Q4

REPORT INFORMATION
  Report Type: 
  Country: None (occurrence: None)
  Receive Date: 20091106
  Receipt Date: 20091102
  Transmission Date: 20100525
  Serious: Yes (Other)
  Sender: FDA-Public Use
  Company Number: US-ROCHE-661667

PATIENT
  Sex: Female
  Weight: 61.7 kg

DRUGS (3)
  1. BONIVA [Suspect]
     Indication: DRUG USE FOR UNKNOWN INDICATION
     Route: 048
     Dates: start: 20091001, end: 20091001
  2. ATENOLOL [Concomitant]
     Indication: CORONARY ARTERY DISEASE
     Dosage: OTHER INDICATION: PAT
     Route: 048
     Dates: start: 20020607
  3. OMEPRAZOLE [Concomitant]
     Route: 048
     Dates: start: 20080117

REACTIONS (5)
  - BLOOD PRESSURE INCREASED [None]
  - DIZZINESS [None]
  - HEART RATE INCREASED [None]
  - HYPERHIDROSIS [None]
  - VERTIGO [None]
